FAERS Safety Report 8087715-1 (Version None)
Quarter: 2012Q1

REPORT INFORMATION
  Report Type: 
  Country: None (occurrence: None)
  Receive Date: 20120128
  Receipt Date: 20110420
  Transmission Date: 20120608
  Serious: No
  Sender: FDA-Public Use
  Company Number: US-ABBOTT-11P-163-0721159-00

PATIENT
  Sex: Male
  Weight: 87.168 kg

DRUGS (2)
  1. HUMIRA [Suspect]
     Indication: PRODUCT USED FOR UNKNOWN INDICATION
     Dosage: ON HOLD BECAUSE OF EVENT
  2. ANALAPRIL [Concomitant]
     Indication: HYPERTENSION

REACTIONS (2)
  - BRONCHITIS [None]
  - SINUSITIS [None]
